FAERS Safety Report 9587883 (Version 2)
Quarter: 2013Q4

REPORT INFORMATION
  Report Type: Spontaneous
  Country: US (occurrence: US)
  Receive Date: 20131003
  Receipt Date: 20131008
  Transmission Date: 20140711
  Serious: Yes (Other)
  Sender: FDA-Public Use
  Company Number: US-ALLERGAN-1315265US

PATIENT
  Age: 48 Year
  Sex: Female

DRUGS (1)
  1. RESTASIS [Suspect]
     Indication: DRY EYE
     Dosage: 1 DROP EACH EYE, QAM; 2 DROPS, EACH EYE, QHS
     Route: 047

REACTIONS (8)
  - Conjunctivitis [Not Recovered/Not Resolved]
  - Migraine [Unknown]
  - Foreign body sensation in eyes [Recovering/Resolving]
  - Eye swelling [Not Recovered/Not Resolved]
  - Eye haemorrhage [Recovering/Resolving]
  - Conjunctivitis [Recovered/Resolved]
  - Incorrect dose administered [Unknown]
  - Wrong technique in drug usage process [Unknown]
